FAERS Safety Report 23362613 (Version 1)
Quarter: 2024Q1

REPORT INFORMATION
  Report Type: Spontaneous
  Country: ES (occurrence: ES)
  Receive Date: 20240103
  Receipt Date: 20240103
  Transmission Date: 20240409
  Serious: Yes (Hospitalization, Other)
  Sender: FDA-Public Use
  Company Number: ES-AMAROX PHARMA-AMR2023ES02191

PATIENT
  Age: 59 Year
  Sex: Female

DRUGS (6)
  1. FINGOLIMOD [Suspect]
     Active Substance: FINGOLIMOD
     Indication: Multiple sclerosis
     Dosage: 5 MICROGRAM/KILOGRAM, QD
     Route: 065
  2. FINGOLIMOD [Suspect]
     Active Substance: FINGOLIMOD
     Dosage: 5 MICROGRAM/KILOGRAM, QD
     Route: 065
  3. FINGOLIMOD [Suspect]
     Active Substance: FINGOLIMOD
     Dosage: 5 MICROGRAM/KILOGRAM, QD
     Route: 065
  4. FINGOLIMOD [Suspect]
     Active Substance: FINGOLIMOD
     Dosage: 5 MICROGRAM/KILOGRAM, QD
     Route: 065
  5. FINGOLIMOD [Suspect]
     Active Substance: FINGOLIMOD
     Dosage: UNK
     Route: 065
     Dates: start: 2016
  6. FILGRASTIM [Suspect]
     Active Substance: FILGRASTIM
     Indication: Progressive multifocal leukoencephalopathy
     Dosage: 390 MICROGRAM, QD (5 MCG/KG/DAY)
     Route: 065

REACTIONS (7)
  - Multiple sclerosis relapse [Unknown]
  - Progressive multifocal leukoencephalopathy [Recovering/Resolving]
  - Lymphopenia [Recovered/Resolved]
  - Leukoencephalopathy [Unknown]
  - Condition aggravated [Unknown]
  - Off label use [Unknown]
  - Drug effective for unapproved indication [Unknown]
